FAERS Safety Report 11113108 (Version 3)
Quarter: 2015Q2

REPORT INFORMATION
  Report Type: Spontaneous
  Country: PT (occurrence: PT)
  Receive Date: 20150514
  Receipt Date: 20150526
  Transmission Date: 20150821
  Serious: Yes (Hospitalization, Other)
  Sender: FDA-Public Use
  Company Number: PT-JNJFOC-20150505706

PATIENT
  Age: 43 Year
  Sex: Female

DRUGS (7)
  1. PREZISTA [Suspect]
     Active Substance: DARUNAVIR ETHANOLATE
     Indication: HIV INFECTION
     Route: 048
  2. TRUVADA [Suspect]
     Active Substance: EMTRICITABINE\TENOFOVIR DISOPROXIL FUMARATE
     Indication: HIV INFECTION
     Route: 065
  3. RITONAVIR. [Suspect]
     Active Substance: RITONAVIR
     Indication: HIV INFECTION
     Route: 065
  4. PYRIMETHAMINE [Concomitant]
     Active Substance: PYRIMETHAMINE
     Route: 065
  5. RIFABUTIN. [Interacting]
     Active Substance: RIFABUTIN
     Indication: PRODUCT USED FOR UNKNOWN INDICATION
     Route: 065
  6. CAELYX [Concomitant]
     Active Substance: DOXORUBICIN HYDROCHLORIDE
     Indication: KAPOSI^S SARCOMA
     Route: 042
  7. ISONIAZIDE [Concomitant]
     Active Substance: ISONIAZID
     Route: 065

REACTIONS (3)
  - Hypokinesia [Unknown]
  - Headache [Unknown]
  - Drug interaction [Unknown]
